FAERS Safety Report 10597020 (Version 2)
Quarter: 2015Q1

REPORT INFORMATION
  Report Type: Report from Study
  Country: DE (occurrence: DE)
  Receive Date: 20141120
  Receipt Date: 20150129
  Transmission Date: 20150720
  Serious: Yes (Hospitalization)
  Sender: FDA-Public Use
  Company Number: DE-ABBVIE-14K-062-1310290-00

PATIENT
  Age: 49 Year
  Sex: Female
  Weight: 76 kg

DRUGS (8)
  1. HUMIRA [Suspect]
     Active Substance: ADALIMUMAB
     Route: 058
     Dates: start: 201411
  2. METHOTREXATE [Suspect]
     Active Substance: METHOTREXATE
     Route: 048
     Dates: start: 20141113
  3. METHOTREXATE [Suspect]
     Active Substance: METHOTREXATE
     Indication: PSORIASIS
     Route: 048
     Dates: end: 20141002
  4. METHOTREXATE [Suspect]
     Active Substance: METHOTREXATE
     Route: 048
     Dates: end: 201411
  5. HUMIRA [Suspect]
     Active Substance: ADALIMUMAB
     Indication: PSORIASIS
     Route: 058
     Dates: start: 20100917, end: 201411
  6. PANTOZOL [Concomitant]
     Active Substance: PANTOPRAZOLE SODIUM
     Indication: PRODUCT USED FOR UNKNOWN INDICATION
     Dosage: 1-0-0
  7. METHOTREXATE [Suspect]
     Active Substance: METHOTREXATE
     Route: 048
     Dates: start: 20141002
  8. FOLSAN [Concomitant]
     Active Substance: FOLIC ACID
     Indication: PRODUCT USED FOR UNKNOWN INDICATION
     Dosage: 1-0-0

REACTIONS (37)
  - Renal failure [Unknown]
  - Blood albumin decreased [Unknown]
  - Splenomegaly [Unknown]
  - Blood creatinine increased [Unknown]
  - Escherichia sepsis [Unknown]
  - Headache [Unknown]
  - Helicobacter gastritis [Unknown]
  - Gastritis [Unknown]
  - Urinary incontinence [Unknown]
  - Bile duct stone [Unknown]
  - Lipase increased [Unknown]
  - Pain in extremity [Unknown]
  - Immunosuppression [Unknown]
  - Pyrexia [Unknown]
  - Infection [Recovering/Resolving]
  - Haemoglobin decreased [Unknown]
  - Immunoglobulins increased [Unknown]
  - Chills [Unknown]
  - Pleural effusion [Unknown]
  - Urosepsis [Unknown]
  - Pneumonia [Recovered/Resolved]
  - General physical health deterioration [Unknown]
  - Nutritional condition abnormal [Unknown]
  - Osteitis [Unknown]
  - Blood lactate dehydrogenase increased [Unknown]
  - Blood iron decreased [Unknown]
  - Blood alkaline phosphatase increased [Unknown]
  - Hypotension [Unknown]
  - Septic shock [Unknown]
  - C-reactive protein increased [Unknown]
  - Hepatic steatosis [Unknown]
  - Urinary tract inflammation [Recovered/Resolved]
  - Abdominal pain upper [Unknown]
  - Hydrocholecystis [Unknown]
  - Intervertebral disc protrusion [Unknown]
  - White blood cell count increased [Unknown]
  - Asthenia [Unknown]

NARRATIVE: CASE EVENT DATE: 2014
